FAERS Safety Report 9531404 (Version 2)
Quarter: 2014Q2

REPORT INFORMATION
  Report Type: Spontaneous
  Country: CA (occurrence: CA)
  Receive Date: 20130918
  Receipt Date: 20140516
  Transmission Date: 20141212
  Serious: Yes (Other)
  Sender: FDA-Public Use
  Company Number: CA-009507513-1309CAN007476

PATIENT
  Age: 65 Year
  Sex: Female

DRUGS (3)
  1. VICTRELIS [Suspect]
     Dosage: UNK
     Route: 048
  2. RIBAVIRIN [Suspect]
     Dosage: 1000MG
     Route: 065
  3. PEGASYS [Suspect]
     Dosage: 180 MICROGRAM, UNK
     Route: 058

REACTIONS (3)
  - Anaemia [Unknown]
  - Chest pain [Unknown]
  - Syncope [Unknown]
